FAERS Safety Report 10169205 (Version 1)
Quarter: 2014Q2

REPORT INFORMATION
  Report Type: Spontaneous
  Country: US (occurrence: None)
  Receive Date: 20140512
  Receipt Date: 20140512
  Transmission Date: 20141212
  Serious: Yes (Hospitalization)
  Sender: FDA-Public Use
  Company Number: None

PATIENT
  Age: 70 Year
  Sex: Male
  Weight: 106.4 kg

DRUGS (4)
  1. ENOXAPARIN [Suspect]
     Indication: DEEP VEIN THROMBOSIS
     Dates: start: 20140406, end: 20140412
  2. ENOXAPARIN [Suspect]
     Indication: DISEASE RECURRENCE
     Dates: start: 20140406, end: 20140412
  3. WARFARIN [Suspect]
     Indication: DEEP VEIN THROMBOSIS
     Route: 048
     Dates: start: 20110609, end: 20140412
  4. WARFARIN [Suspect]
     Indication: DISEASE RECURRENCE
     Route: 048
     Dates: start: 20110609, end: 20140412

REACTIONS (1)
  - Haematoma [None]
